FAERS Safety Report 8430980-9 (Version None)
Quarter: 2012Q2

REPORT INFORMATION
  Report Type: 
  Country: None (occurrence: None)
  Receive Date: 20120612
  Receipt Date: 20120530
  Transmission Date: 20120825
  Serious: Yes (Other)
  Sender: FDA-Public Use
  Company Number: FR-MYLANLABS-2012S1011360

PATIENT
  Age: 79 Year
  Sex: Male

DRUGS (13)
  1. FUROSEMIDE [Concomitant]
     Route: 065
  2. LOSARTAN [Concomitant]
     Route: 065
  3. AMILORIDE HYDROCHLORIDE [Concomitant]
     Route: 065
  4. ATENOLOL [Concomitant]
     Route: 065
  5. DARBEPOETIN ALFA [Concomitant]
     Route: 065
  6. SIROLIMUS [Interacting]
     Indication: IMMUNOSUPPRESSION
     Dosage: DOSAGE ADJUSTED AT 1MG STEPS TO ACHIEVE THERAPEUTIC DRUG LEVELS (6-10 MICROG/L)
     Route: 065
     Dates: start: 20070501, end: 20070801
  7. ATORVASTATIN CALCIUM [Suspect]
     Route: 065
  8. ALLOPURINOL [Concomitant]
     Route: 065
  9. ASPIRIN [Concomitant]
     Route: 065
  10. TAMSULOSIN HCL [Concomitant]
     Route: 065
  11. REPAGLINIDE [Concomitant]
     Route: 065
  12. NIFEDIPINE [Concomitant]
     Route: 065
  13. RABEPRAZOLE SODIUM [Concomitant]
     Route: 065

REACTIONS (2)
  - DRUG INTERACTION [None]
  - PNEUMONITIS [None]
